FAERS Safety Report 8337293 (Version 6)
Quarter: 2013Q2

REPORT INFORMATION
  Report Type: Spontaneous
  Country: BE (occurrence: BE)
  Receive Date: 20120113
  Receipt Date: 20130408
  Transmission Date: 20140414
  Serious: Yes (Other)
  Sender: FDA-Public Use
  Company Number: BE-ABBOTT-12P-013-0892351-00

PATIENT
  Age: 44 Year
  Sex: Male

DRUGS (4)
  1. HUMIRA 40 MG/ 0.8 ML PRE-FILLED SYRINGE [Suspect]
     Indication: CROHN^S DISEASE
     Route: 058
     Dates: start: 200805, end: 20111222
  2. AMLOR [Concomitant]
     Indication: HYPERTENSION
     Route: 048
  3. KINZALMONO [Concomitant]
     Indication: HYPERTENSION
     Route: 048
  4. METFORMINE [Concomitant]
     Indication: DIABETES MELLITUS
     Dosage: 2X500MG
     Route: 048

REACTIONS (4)
  - Paresis [Recovering/Resolving]
  - Acute disseminated encephalomyelitis [Unknown]
  - Multiple sclerosis [Unknown]
  - Multiple sclerosis [Unknown]
